FAERS Safety Report 22614548 (Version 3)
Quarter: 2023Q2

REPORT INFORMATION
  Report Type: Report from Study
  Country: CA (occurrence: CA)
  Receive Date: 20230619
  Receipt Date: 20230628
  Transmission Date: 20230722
  Serious: Yes (Hospitalization)
  Sender: FDA-Public Use
  Company Number: CA-ABBVIE-5294100

PATIENT
  Age: 79 Year
  Sex: Male

DRUGS (1)
  1. RINVOQ [Suspect]
     Active Substance: UPADACITINIB
     Indication: Ankylosing spondylitis
     Route: 048
     Dates: start: 202011, end: 202305

REACTIONS (2)
  - Lip and/or oral cavity cancer [Recovering/Resolving]
  - Throat cancer [Recovering/Resolving]

NARRATIVE: CASE EVENT DATE: 20230401
